FAERS Safety Report 4693163-4 (Version None)
Quarter: 2005Q2

REPORT INFORMATION
  Report Type: 
  Country: None (occurrence: None)
  Receive Date: 20050617
  Receipt Date: 20050223
  Transmission Date: 20051028
  Serious: Yes (Other)
  Sender: FDA-Public Use
  Company Number: US-JNJFOC-20050205656

PATIENT
  Age: 70 Year
  Sex: Female

DRUGS (1)
  1. DITROPAN XL [Suspect]
     Route: 049

REACTIONS (1)
  - DEMENTIA [None]
